FAERS Safety Report 9424176 (Version 4)
Quarter: 2013Q3

REPORT INFORMATION
  Report Type: Spontaneous
  Country: IT (occurrence: IT)
  Receive Date: 20130729
  Receipt Date: 20130920
  Transmission Date: 20140515
  Serious: Yes (Death, Hospitalization)
  Sender: FDA-Public Use
  Company Number: PHHY2013IT064733

PATIENT
  Sex: Male

DRUGS (3)
  1. GLIVEC [Suspect]
     Indication: CHRONIC MYELOID LEUKAEMIA
     Dosage: 400 MG, QD
     Dates: start: 20130228, end: 20130618
  2. TICLOPIDINA [Concomitant]
     Indication: TRANSIENT ISCHAEMIC ATTACK
     Dosage: 500 MG
     Route: 048
  3. HUMULIN [Concomitant]
     Indication: DIABETES MELLITUS
     Dosage: 30 U
     Route: 058

REACTIONS (13)
  - Hepatic failure [Fatal]
  - Speech disorder [Unknown]
  - Aphasia [Unknown]
  - Hepatitis acute [Unknown]
  - Hypertransaminasaemia [Unknown]
  - Transaminases increased [Unknown]
  - Nausea [Unknown]
  - Decreased appetite [Unknown]
  - Jaundice [Unknown]
  - Blood disorder [Unknown]
  - Leukocytosis [Unknown]
  - Thrombocytosis [Unknown]
  - Anaemia [Unknown]
